FAERS Safety Report 7083403-9 (Version None)
Quarter: 2010Q4

REPORT INFORMATION
  Report Type: 
  Country: None (occurrence: None)
  Receive Date: 20101104
  Receipt Date: 20101102
  Transmission Date: 20110411
  Serious: Yes (Hospitalization)
  Sender: FDA-Public Use
  Company Number: A0796196A

PATIENT
  Age: 66 Year
  Sex: Male
  Weight: 92 kg

DRUGS (12)
  1. AVANDIA [Suspect]
     Dosage: 8MG PER DAY
     Route: 048
     Dates: start: 20020501, end: 20070401
  2. AVANDAMET [Suspect]
     Route: 048
  3. ASPIRIN [Concomitant]
  4. GLUCOPHAGE [Concomitant]
  5. CLONIDINE [Concomitant]
  6. HYDROCHLOROTHIAZIDE [Concomitant]
  7. HUMULIN R [Concomitant]
  8. NPH INSULIN [Concomitant]
  9. LIPITOR [Concomitant]
  10. MONOPRIL [Concomitant]
  11. REGLAN [Concomitant]
  12. ZELNORM [Concomitant]

REACTIONS (4)
  - ACUTE MYOCARDIAL INFARCTION [None]
  - CARDIAC FAILURE CONGESTIVE [None]
  - CORONARY ARTERY DISEASE [None]
  - RESPIRATORY FAILURE [None]
